FAERS Safety Report 12173590 (Version 1)
Quarter: 2016Q1

REPORT INFORMATION
  Report Type: Spontaneous
  Country: US (occurrence: None)
  Receive Date: 20160311
  Receipt Date: 20160311
  Transmission Date: 20160526
  Serious: Yes (Other)
  Sender: FDA-Public Use
  Company Number: None

PATIENT
  Age: 76 Year
  Sex: Female

DRUGS (1)
  1. HUMIRA [Suspect]
     Active Substance: ADALIMUMAB
     Indication: PSORIATIC ARTHROPATHY
     Dosage: 40/0.8 ML
     Route: 058
     Dates: start: 20150105

REACTIONS (2)
  - Therapy cessation [None]
  - Herpes zoster [None]

NARRATIVE: CASE EVENT DATE: 20151224
